FAERS Safety Report 5503682-6 (Version None)
Quarter: 2007Q4

REPORT INFORMATION
  Report Type: 
  Country: None (occurrence: None)
  Receive Date: 20071101
  Receipt Date: 20071024
  Transmission Date: 20080405
  Serious: Yes (Hospitalization)
  Sender: FDA-Public Use
  Company Number: PHBS2007JP17887

PATIENT
  Age: 79 Year
  Sex: Male

DRUGS (2)
  1. TEGRETOL [Suspect]
     Indication: HYPOAESTHESIA
     Route: 048
  2. VACCINES [Suspect]

REACTIONS (4)
  - DISSEMINATED INTRAVASCULAR COAGULATION [None]
  - DRUG ERUPTION [None]
  - LIVER DISORDER [None]
  - PYREXIA [None]
